FAERS Safety Report 4844969-X (Version None)
Quarter: 2005Q4

REPORT INFORMATION
  Report Type: 
  Country: None (occurrence: None)
  Receive Date: 20051202
  Receipt Date: 20051202
  Transmission Date: 20060501
  Serious: Yes (Hospitalization)
  Sender: FDA-Public Use
  Company Number: None

PATIENT
  Age: 77 Year
  Sex: Male
  Weight: 67.1324 kg

DRUGS (7)
  1. OXALIPLATIN [Suspect]
     Dosage: IV , Q 3 WKS .87
     Route: 042
     Dates: start: 20050607
  2. GEMZAR [Suspect]
     Dosage: IV Q3WKS
     Route: 042
     Dates: start: 20050607
  3. FLUOROURACIL [Suspect]
     Dosage: IV Q8 WKS 965
     Route: 042
     Dates: start: 20050607
  4. LEUCOVORIN CALCIUM [Suspect]
     Dosage: IV Q 8 WKS 39
     Route: 042
     Dates: start: 20050607
  5. LASIX [Concomitant]
  6. ENALAPRIL [Concomitant]
  7. PROPRANOLOL [Concomitant]

REACTIONS (2)
  - BACTERIAL INFECTION [None]
  - SEPSIS [None]
